FAERS Safety Report 9645618 (Version 1)
Quarter: 2013Q4

REPORT INFORMATION
  Report Type: Spontaneous
  Country: BR (occurrence: BR)
  Receive Date: 20131025
  Receipt Date: 20131025
  Transmission Date: 20140711
  Serious: Yes (Other)
  Sender: FDA-Public Use
  Company Number: BR-PFIZER INC-2013304263

PATIENT
  Age: 63 Year
  Sex: Female
  Weight: 100 kg

DRUGS (2)
  1. CELEBRA [Suspect]
     Indication: FIBROMYALGIA
     Dosage: 200 MG, 2X/DAY
     Route: 048
     Dates: start: 20121206
  2. LYRICA [Suspect]
     Indication: FIBROMYALGIA
     Dosage: 75 MG, 1X/DAY
     Route: 048
     Dates: start: 20120712

REACTIONS (3)
  - Bone cancer [Unknown]
  - Blood glucose abnormal [Unknown]
  - Pain [Unknown]
